FAERS Safety Report 11121163 (Version 1)
Quarter: 2015Q2

REPORT INFORMATION
  Report Type: Spontaneous
  Country: US (occurrence: None)
  Receive Date: 20150518
  Receipt Date: 20150518
  Transmission Date: 20150821
  Serious: Yes (Life-Threatening)
  Sender: FDA-Public Use
  Company Number: None

PATIENT
  Age: 22 Year
  Sex: Male
  Weight: 87.09 kg

DRUGS (4)
  1. KETOROLAC [Suspect]
     Active Substance: KETOROLAC\KETOROLAC TROMETHAMINE
     Indication: TOOTH INFECTION
     Route: 030
  2. CEFTRIAXONE 1G/3.5ML POWDER+SOLVENT FOR SOLUTION FOR INJECTION(I.M.) [Suspect]
     Active Substance: CEFTRIAXONE
     Indication: TOOTHACHE
     Route: 030
  3. KETOROLAC [Suspect]
     Active Substance: KETOROLAC\KETOROLAC TROMETHAMINE
     Indication: TOOTHACHE
     Route: 030
  4. CEFTRIAXONE 1G/3.5ML POWDER+SOLVENT FOR SOLUTION FOR INJECTION(I.M.) [Suspect]
     Active Substance: CEFTRIAXONE
     Indication: TOOTH ABSCESS
     Route: 030

REACTIONS (1)
  - Eye swelling [None]

NARRATIVE: CASE EVENT DATE: 20150512
